FAERS Safety Report 7331897-3 (Version None)
Quarter: 2011Q1

REPORT INFORMATION
  Report Type: 
  Country: None (occurrence: None)
  Receive Date: 20110304
  Receipt Date: 20091118
  Transmission Date: 20110831
  Serious: No
  Sender: FDA-Public Use
  Company Number: US-PFIZER INC-2009276499

PATIENT
  Sex: Male

DRUGS (3)
  1. AVODART [Suspect]
  2. DILANTIN [Interacting]
     Dosage: UNK
  3. CALCIUM [Interacting]

REACTIONS (2)
  - DRUG INTERACTION [None]
  - FEELING ABNORMAL [None]
